FAERS Safety Report 8494579-0 (Version None)
Quarter: 2012Q3

REPORT INFORMATION
  Report Type: 
  Country: None (occurrence: None)
  Receive Date: 20120709
  Receipt Date: 20120703
  Transmission Date: 20120928
  Serious: Yes (Life-Threatening, Hospitalization, Other)
  Sender: FDA-Public Use
  Company Number: PHHY2012ES035628

PATIENT
  Age: 64 Year
  Sex: Female

DRUGS (5)
  1. GILENYA [Suspect]
     Dosage: 0.5 MG, QD
     Route: 048
     Dates: start: 20120501, end: 20120525
  2. GILENYA [Suspect]
     Dosage: 0.5 MG, QD
     Route: 048
  3. ANTIDEPRESSANTS [Concomitant]
     Dosage: UNK UKN, UNK
  4. ANTIARRHYTHMICS, CLASS I AND III [Concomitant]
     Dosage: UNK UKN, UNK
  5. GILENYA [Suspect]
     Dosage: 0.5 MG, QD
     Route: 048
     Dates: start: 20110901, end: 20120330

REACTIONS (22)
  - WHITE BLOOD CELL COUNT INCREASED [None]
  - MIXED INCONTINENCE [None]
  - PARAPLEGIA [None]
  - PYURIA [None]
  - INFECTIOUS PERITONITIS [None]
  - APPENDIX DISORDER [None]
  - GASTROENTERITIS [None]
  - PYREXIA [None]
  - APPENDICITIS [None]
  - SEROMA [None]
  - NEUTROPHIL PERCENTAGE INCREASED [None]
  - PROTEIN URINE PRESENT [None]
  - NAUSEA [None]
  - GALLBLADDER DISORDER [None]
  - MOTOR DYSFUNCTION [None]
  - ABDOMINAL DISTENSION [None]
  - RED BLOOD CELLS URINE [None]
  - WHITE BLOOD CELLS URINE POSITIVE [None]
  - COMA [None]
  - ABDOMINAL PAIN [None]
  - NITRITE URINE PRESENT [None]
  - BACTERIURIA [None]
